FAERS Safety Report 7876392-8 (Version None)
Quarter: 2011Q4

REPORT INFORMATION
  Report Type: 
  Country: None (occurrence: None)
  Receive Date: 20111031
  Receipt Date: 20111024
  Transmission Date: 20120403
  Serious: Yes (Hospitalization)
  Sender: FDA-Public Use
  Company Number: US-AMGEN-USASP2011055117

PATIENT
  Age: 34 Year
  Sex: Female

DRUGS (2)
  1. ENBREL [Suspect]
     Indication: RHEUMATOID ARTHRITIS
     Dosage: 25 MG, 2 TIMES/WK
     Dates: start: 20020101, end: 20040101
  2. ENBREL [Suspect]
     Indication: PSORIASIS

REACTIONS (6)
  - CERVIX DISORDER [None]
  - UTERINE RUPTURE [None]
  - ARTHRALGIA [None]
  - DRUG EFFECT DECREASED [None]
  - PSORIASIS [None]
  - JOINT SWELLING [None]
